FAERS Safety Report 9628337 (Version 3)
Quarter: 2013Q4

REPORT INFORMATION
  Report Type: Report from Study
  Country: CA (occurrence: CA)
  Receive Date: 20131017
  Receipt Date: 20131108
  Transmission Date: 20140711
  Serious: No
  Sender: FDA-Public Use
  Company Number: CA-ALEXION PHARMACEUTICALS INC.-A201301766

PATIENT
  Age: 29 Year
  Sex: Female

DRUGS (9)
  1. SOLIRIS [Suspect]
     Indication: PAROXYSMAL NOCTURNAL HAEMOGLOBINURIA
     Dosage: 600 MG, QW
     Route: 042
     Dates: start: 20130723, end: 20130812
  2. SOLIRIS [Suspect]
     Dosage: 900 MG, Q2W
     Route: 042
     Dates: start: 20130819
  3. SOLIRIS [Suspect]
     Dosage: 600 MG, QW
     Dates: start: 20130930
  4. DALTEPARIN [Concomitant]
     Indication: BUDD-CHIARI SYNDROME
     Dosage: 15,000 UNITS BID
     Route: 058
     Dates: start: 20130605
  5. FOLIC ACID [Concomitant]
     Indication: VITAMIN SUPPLEMENTATION
     Dosage: 5 MG, QD
     Route: 048
     Dates: start: 20130605
  6. IRON SULFATE [Concomitant]
     Indication: VITAMIN SUPPLEMENTATION
     Dosage: 300 MG, QD
     Route: 048
     Dates: start: 20130605
  7. MULTIVITAMIN [Concomitant]
     Indication: VITAMIN SUPPLEMENTATION
     Dosage: UNK, QD
     Route: 048
  8. TYLENOL [Concomitant]
     Indication: PAIN
     Dosage: 325 MG - 650 MG PO Q4H PRN
     Route: 048
     Dates: start: 20130605
  9. CEFTIN [Concomitant]
     Indication: WOUND INFECTION
     Dosage: UNK, PO QID
     Route: 048

REACTIONS (5)
  - Menstruation irregular [Not Recovered/Not Resolved]
  - Abdominal distension [Recovered/Resolved]
  - Diarrhoea [Recovered/Resolved]
  - Fatigue [Not Recovered/Not Resolved]
  - Headache [Not Recovered/Not Resolved]
